FAERS Safety Report 5851164-4 (Version None)
Quarter: 2008Q3

REPORT INFORMATION
  Report Type: 
  Country: None (occurrence: None)
  Receive Date: 20080820
  Receipt Date: 20080805
  Transmission Date: 20090109
  Serious: Yes (Other)
  Sender: FDA-Public Use
  Company Number: US-ASTRAZENECA-2008UW15943

PATIENT
  Age: 73 Year
  Sex: Female
  Weight: 72.6 kg

DRUGS (7)
  1. ARIMIDEX [Suspect]
     Indication: BREAST CANCER
     Route: 048
     Dates: start: 20060101
  2. SYNTHROID [Concomitant]
  3. PREDNISONE TAB [Concomitant]
  4. METHOTREXATE SODIUM [Concomitant]
  5. FOSOMAX [Concomitant]
  6. CALCIUM [Concomitant]
  7. FOLIC ACID [Concomitant]

REACTIONS (3)
  - OSTEOPOROSIS [None]
  - RHEUMATOID ARTHRITIS [None]
  - SPINAL FRACTURE [None]
